FAERS Safety Report 6391678-4 (Version None)
Quarter: 2009Q4

REPORT INFORMATION
  Report Type: 
  Country: None (occurrence: None)
  Receive Date: 20091005
  Receipt Date: 20090916
  Transmission Date: 20100525
  Serious: Yes (Death, Hospitalization)
  Sender: FDA-Public Use
  Company Number: 1000009120

PATIENT
  Sex: Female

DRUGS (5)
  1. CITALOPRAM HYDROBROMIDE [Suspect]
  2. DIAZEPAM [Suspect]
  3. ALPRAZOLAM [Suspect]
     Dosage: 200 MG  IN 6-DAY PERIOD
  4. ZOLPIDEM [Concomitant]
  5. PHENYTOIN [Concomitant]

REACTIONS (7)
  - ABNORMAL BEHAVIOUR [None]
  - BODY TEMPERATURE INCREASED [None]
  - CONVULSION [None]
  - DYSKINESIA [None]
  - HYPERTENSION [None]
  - OVERDOSE [None]
  - WITHDRAWAL SYNDROME [None]
